FAERS Safety Report 10076527 (Version 1)
Quarter: 2014Q2

REPORT INFORMATION
  Report Type: Spontaneous
  Country: US (occurrence: US)
  Receive Date: 20140414
  Receipt Date: 20140414
  Transmission Date: 20141212
  Serious: No
  Sender: FDA-Public Use
  Company Number: US-PFIZER INC-2014102893

PATIENT
  Age: 63 Year
  Sex: Male
  Weight: 111 kg

DRUGS (3)
  1. GABAPENTIN [Suspect]
     Indication: DIABETES MELLITUS
     Dosage: 300 MG, 2X/DAY
  2. GABAPENTIN [Suspect]
     Indication: PAIN IN EXTREMITY
  3. METFORMIN [Concomitant]
     Indication: DIABETES MELLITUS
     Dosage: 500 MG, 2X/DAY

REACTIONS (1)
  - Drug ineffective [Unknown]
